FAERS Safety Report 6671159-0 (Version None)
Quarter: 2010Q2

REPORT INFORMATION
  Report Type: 
  Country: None (occurrence: None)
  Receive Date: 20100406
  Receipt Date: 20100406
  Transmission Date: 20101027
  Serious: Yes (Disabling)
  Sender: FDA-Public Use
  Company Number: None

PATIENT
  Sex: Female
  Weight: 90.7194 kg

DRUGS (2)
  1. SEROQUEL XR [Suspect]
     Indication: MAJOR DEPRESSION
     Dosage: 50 MG TO 300 MG 1 TO 3XDAY 047
     Dates: start: 20050601, end: 20100218
  2. EFFEXOR [Concomitant]

REACTIONS (1)
  - TYPE 2 DIABETES MELLITUS [None]
